FAERS Safety Report 20221831 (Version 2)
Quarter: 2022Q1

REPORT INFORMATION
  Report Type: Spontaneous
  Country: ES (occurrence: ES)
  Receive Date: 20211223
  Receipt Date: 20220316
  Transmission Date: 20220423
  Serious: No
  Sender: FDA-Public Use
  Company Number: ES-GLAXOSMITHKLINE-ES2021EME261369

PATIENT
  Age: 57 Year
  Sex: Female

DRUGS (8)
  1. SOTROVIMAB [Suspect]
     Active Substance: SOTROVIMAB
     Indication: Polymerase chain reaction positive
     Dosage: 500 MG, Z SINGLE DOSE
     Route: 042
     Dates: start: 20211122, end: 20211122
  2. SOTROVIMAB [Suspect]
     Active Substance: SOTROVIMAB
     Indication: COVID-19 pneumonia
  3. PLITIDEPSIN [Concomitant]
     Active Substance: PLITIDEPSIN
     Indication: Product used for unknown indication
     Dosage: UNK FIRST CYCLE
     Dates: start: 20210901, end: 20210903
  4. PLITIDEPSIN [Concomitant]
     Active Substance: PLITIDEPSIN
     Dosage: UNK SECOND CYCLE
     Dates: start: 20210909, end: 20210911
  5. PLITIDEPSIN [Concomitant]
     Active Substance: PLITIDEPSIN
     Dosage: UNK THIRD CYCLE
     Dates: start: 20211110, end: 20211112
  6. BENDAMUSTINE [Concomitant]
     Active Substance: BENDAMUSTINE
     Indication: Non-Hodgkin^s lymphoma
     Dosage: UNK
  7. OBINUTUZUMAB [Concomitant]
     Active Substance: OBINUTUZUMAB
     Indication: Non-Hodgkin^s lymphoma
     Dosage: FIRST CYCLE
     Dates: start: 20200915, end: 20200929
  8. OBINUTUZUMAB [Concomitant]
     Active Substance: OBINUTUZUMAB
     Dosage: FIFTH CYCLE
     Dates: start: 20210107

REACTIONS (1)
  - Off label use [Unknown]

NARRATIVE: CASE EVENT DATE: 20211122
